FAERS Safety Report 20237356 (Version 2)
Quarter: 2022Q1

REPORT INFORMATION
  Report Type: Spontaneous
  Country: GR (occurrence: GR)
  Receive Date: 20211228
  Receipt Date: 20220106
  Transmission Date: 20220424
  Serious: Yes (Death, Hospitalization)
  Sender: FDA-Public Use
  Company Number: GR-BAYER-2021A263307

PATIENT
  Age: 66 Year
  Sex: Male

DRUGS (15)
  1. LINEZOLID [Suspect]
     Active Substance: LINEZOLID
     Indication: Superinfection bacterial
     Dosage: UNK
     Dates: start: 20200331
  2. LINEZOLID [Suspect]
     Active Substance: LINEZOLID
     Indication: Pneumonia pseudomonal
  3. LINEZOLID [Suspect]
     Active Substance: LINEZOLID
     Indication: Pneumonia acinetobacter
  4. MEROPENEM [Suspect]
     Active Substance: MEROPENEM
     Indication: Pneumonia acinetobacter
     Dosage: UNK
     Dates: start: 20200331
  5. MEROPENEM [Suspect]
     Active Substance: MEROPENEM
     Indication: Pneumonia pseudomonal
  6. MEROPENEM [Suspect]
     Active Substance: MEROPENEM
     Indication: Pneumonia acinetobacter
  7. TIGECYCLINE [Suspect]
     Active Substance: TIGECYCLINE
     Dosage: UNK
  8. ANIDULAFUNGIN [Suspect]
     Active Substance: ANIDULAFUNGIN
     Dosage: UNK
  9. MOXIFLOXACIN [Suspect]
     Active Substance: MOXIFLOXACIN
     Indication: Pneumonia pseudomonal
     Dosage: UNK
     Route: 042
     Dates: start: 20200331
  10. MOXIFLOXACIN [Suspect]
     Active Substance: MOXIFLOXACIN
     Indication: Pneumonia acinetobacter
  11. MOXIFLOXACIN [Suspect]
     Active Substance: MOXIFLOXACIN
     Indication: Superinfection bacterial
  12. CEFTAZIDIME\TAZOBACTAM SODIUM [Suspect]
     Active Substance: CEFTAZIDIME\TAZOBACTAM SODIUM
     Dosage: UNK
  13. COLISTIN SULFATE [Suspect]
     Active Substance: COLISTIN SULFATE
     Dosage: UNK
  14. HYDROXYCHLOROQUINE [Suspect]
     Active Substance: HYDROXYCHLOROQUINE
     Dosage: 5 DAYS
  15. LOPINAVIR\RITONAVIR [Suspect]
     Active Substance: LOPINAVIR\RITONAVIR
     Dosage: 10 DAYS

REACTIONS (2)
  - Condition aggravated [Fatal]
  - Drug ineffective [Unknown]

NARRATIVE: CASE EVENT DATE: 20200416
